FAERS Safety Report 7684657-8 (Version None)
Quarter: 2011Q3

REPORT INFORMATION
  Report Type: 
  Country: None (occurrence: None)
  Receive Date: 20110816
  Receipt Date: 20110810
  Transmission Date: 20111222
  Serious: No
  Sender: FDA-Public Use
  Company Number: US-BIOGENIDEC-2011BI030312

PATIENT
  Age: 60 Year
  Sex: Female

DRUGS (4)
  1. AVONEX [Suspect]
     Route: 030
     Dates: start: 20050601
  2. AVONEX [Suspect]
     Route: 030
     Dates: start: 20080201
  3. AVONEX [Suspect]
     Route: 030
     Dates: start: 20051201, end: 20070801
  4. AVONEX [Suspect]
     Indication: MULTIPLE SCLEROSIS
     Route: 030
     Dates: start: 20050101

REACTIONS (2)
  - NEURALGIA [None]
  - MULTIPLE SCLEROSIS RELAPSE [None]
